FAERS Safety Report 4303037-6 (Version None)
Quarter: 2004Q1

REPORT INFORMATION
  Report Type: 
  Country: None (occurrence: None)
  Receive Date: 20040224
  Receipt Date: 20030617
  Transmission Date: 20041129
  Serious: Yes (Life-Threatening, Hospitalization)
  Sender: FDA-Public Use
  Company Number: WAES 0306FRA00064

PATIENT
  Age: 0 Day
  Sex: Male
  Weight: 2 kg

DRUGS (3)
  1. MIDAMOR [Suspect]
     Indication: RENAL TUBULAR DISORDER
     Dates: start: 19980101
  2. MAGNESIUM LACTATE AND PYRIDOXINE HYDROCHLORIDE [Concomitant]
     Indication: MINERAL SUPPLEMENTATION
     Dates: start: 19961101
  3. POTASSIUM CHLORIDE [Concomitant]
     Indication: MINERAL SUPPLEMENTATION
     Dates: start: 19961101

REACTIONS (9)
  - COMPLICATIONS OF MATERNAL EXPOSURE TO THERAPEUTIC DRUGS [None]
  - GROWTH RETARDATION [None]
  - MATERNAL DRUGS AFFECTING FOETUS [None]
  - NEONATAL DISORDER [None]
  - NEONATAL RESPIRATORY DISTRESS SYNDROME [None]
  - OLIGOHYDRAMNIOS [None]
  - PNEUMOMEDIASTINUM [None]
  - PNEUMOTHORAX [None]
  - PREGNANCY [None]
